FAERS Safety Report 8137678-5 (Version None)
Quarter: 2012Q1

REPORT INFORMATION
  Report Type: 
  Country: None (occurrence: None)
  Receive Date: 20120215
  Receipt Date: 20120201
  Transmission Date: 20120608
  Serious: Yes (Hospitalization, Other)
  Sender: FDA-Public Use
  Company Number: TR-RANBAXY-2012RR-52621

PATIENT
  Age: 24 Year
  Sex: Male

DRUGS (4)
  1. SERTRALINE HYDROCHLORIDE [Interacting]
     Indication: OBSESSIVE-COMPULSIVE DISORDER
     Dosage: UNK
     Route: 065
     Dates: start: 20040201
  2. RISPERIDONE [Suspect]
     Indication: CONDITION AGGRAVATED
     Dosage: 1 MG/DAY
     Route: 065
     Dates: start: 20040101
  3. RISPERIDONE [Suspect]
     Dosage: 2 MG/DAY
     Route: 065
     Dates: start: 20040101
  4. SERTRALINE HYDROCHLORIDE [Interacting]
     Dosage: 200 MG/DAY
     Route: 065
     Dates: start: 20040101

REACTIONS (2)
  - PRIAPISM [None]
  - DRUG INTERACTION [None]
